FAERS Safety Report 12013528 (Version 1)
Quarter: 2016Q1

REPORT INFORMATION
  Report Type: Spontaneous
  Country: US (occurrence: US)
  Receive Date: 20160205
  Receipt Date: 20160205
  Transmission Date: 20160526
  Serious: No
  Sender: FDA-Public Use
  Company Number: US-AMGEN-USASP2015047154

PATIENT

DRUGS (1)
  1. NEULASTA [Suspect]
     Active Substance: PEGFILGRASTIM
     Indication: PRODUCT USED FOR UNKNOWN INDICATION
     Dosage: UNK
     Route: 065

REACTIONS (15)
  - Feeling abnormal [Unknown]
  - Depression [Unknown]
  - Visual impairment [Unknown]
  - Hypoaesthesia [Unknown]
  - Myalgia [Unknown]
  - Decreased appetite [Unknown]
  - Headache [Unknown]
  - Mental disorder [Unknown]
  - Fatigue [Unknown]
  - Speech disorder [Unknown]
  - Nasopharyngitis [Unknown]
  - Arthralgia [Unknown]
  - Bone pain [Unknown]
  - Throat irritation [Unknown]
  - Ageusia [Unknown]
